FAERS Safety Report 5199844-0 (Version None)
Quarter: 2006Q4

REPORT INFORMATION
  Report Type: 
  Country: None (occurrence: None)
  Receive Date: 20061229
  Receipt Date: 20061215
  Transmission Date: 20070319
  Serious: Yes (Hospitalization)
  Sender: FDA-Public Use
  Company Number: GXKR2006FR08217

PATIENT
  Age: 47 Year
  Sex: Female

DRUGS (2)
  1. AMOXICILLIN [Suspect]
     Indication: INFECTION
     Dosage: UNK, UNK, ORAL
     Route: 048
  2. ACEBUTOLOL (ACETUBTOLOL) [Concomitant]

REACTIONS (8)
  - ANAPHYLACTIC SHOCK [None]
  - CONTRAINDICATION TO MEDICAL TREATMENT [None]
  - ERYTHEMA [None]
  - FACE OEDEMA [None]
  - HYPOTENSION [None]
  - MEDICATION ERROR [None]
  - SEDATION [None]
  - SIMILAR REACTION ON PREVIOUS EXPOSURE TO DRUG [None]
